FAERS Safety Report 25594479 (Version 3)
Quarter: 2025Q4

REPORT INFORMATION
  Report Type: Report from Study
  Country: US (occurrence: None)
  Receive Date: 20250723
  Receipt Date: 20251125
  Transmission Date: 20260118
  Serious: Yes (Other)
  Sender: UCB
  Company Number: US-UCBSA-2025037315

PATIENT

DRUGS (4)
  1. FENFLURAMINE [Suspect]
     Active Substance: FENFLURAMINE
     Indication: Lennox-Gastaut syndrome
     Dosage: 3.8 MILLILITER BID FOR 7 DAYS THEN 7.6 MILLILITERS BID THEREAFTER
  2. FENFLURAMINE [Suspect]
     Active Substance: FENFLURAMINE
     Dosage: 9 MILLILITER, 2X/DAY (BID)
  3. FENFLURAMINE [Suspect]
     Active Substance: FENFLURAMINE
     Dosage: 9 MILLILITER, 2X/DAY (BID)
  4. FENFLURAMINE [Suspect]
     Active Substance: FENFLURAMINE
     Dosage: 10 MILLILITER, 2X/DAY (BID)

REACTIONS (5)
  - Seizure [Not Recovered/Not Resolved]
  - Head injury [Not Recovered/Not Resolved]
  - Off label use [Unknown]
  - Prescribed overdose [Unknown]
  - Treatment noncompliance [Unknown]
